FAERS Safety Report 6570592-5 (Version None)
Quarter: 2010Q1

REPORT INFORMATION
  Report Type: 
  Country: None (occurrence: None)
  Receive Date: 20100204
  Receipt Date: 20100122
  Transmission Date: 20100710
  Serious: Yes (Other)
  Sender: FDA-Public Use
  Company Number: BE-MYLANLABS-2010S1001150

PATIENT
  Age: 61 Year
  Sex: Female

DRUGS (10)
  1. BACLOFEN [Suspect]
     Indication: ALCOHOLISM
     Route: 048
     Dates: start: 20091225
  2. BACLOFEN [Suspect]
     Route: 048
  3. BACLOFEN [Suspect]
     Route: 048
  4. BACLOFEN [Suspect]
     Route: 048
  5. BACLOFEN [Suspect]
     Route: 048
  6. REMERGON [Concomitant]
     Indication: DRUG USE FOR UNKNOWN INDICATION
  7. CITALOPRAM [Concomitant]
     Indication: DRUG USE FOR UNKNOWN INDICATION
  8. TRAZODONE [Concomitant]
     Indication: DRUG USE FOR UNKNOWN INDICATION
  9. BONIVA [Concomitant]
     Indication: DRUG USE FOR UNKNOWN INDICATION
  10. BEFACT /02938801/ [Concomitant]
     Indication: DRUG USE FOR UNKNOWN INDICATION

REACTIONS (2)
  - EPILEPSY [None]
  - HYPOTONIA [None]
